FAERS Safety Report 17494868 (Version 1)
Quarter: 2020Q1

REPORT INFORMATION
  Report Type: Spontaneous
  Country: US (occurrence: US)
  Receive Date: 20200221
  Receipt Date: 20200221
  Transmission Date: 20200409
  Serious: No
  Sender: FDA-Public Use
  Company Number: None

PATIENT
  Age: 74 Year
  Sex: Male
  Weight: 97.07 kg

DRUGS (2)
  1. VANCOMYCIN (VANCOMYCIN HCL 100MG/ML INJ) [Suspect]
     Active Substance: VANCOMYCIN HYDROCHLORIDE
     Indication: OSTEOMYELITIS
     Route: 042
     Dates: start: 20200116, end: 20200210
  2. VANCOMYCIN (VANCOMYCIN HCL 100MG/ML INJ) [Suspect]
     Active Substance: VANCOMYCIN HYDROCHLORIDE
     Indication: DIABETIC FOOT
     Route: 042
     Dates: start: 20200116, end: 20200210

REACTIONS (5)
  - Dizziness [None]
  - Nausea [None]
  - Blood creatinine increased [None]
  - Vomiting [None]
  - Blood urea increased [None]

NARRATIVE: CASE EVENT DATE: 20200210
